FAERS Safety Report 9827281 (Version 1)
Quarter: 2014Q1

REPORT INFORMATION
  Report Type: Spontaneous
  Country: US (occurrence: US)
  Receive Date: 20140117
  Receipt Date: 20140117
  Transmission Date: 20141002
  Serious: No
  Sender: FDA-Public Use
  Company Number: US-BRISTOL-MYERS SQUIBB COMPANY-19895721

PATIENT
  Sex: Male

DRUGS (1)
  1. YERVOY [Suspect]
     Route: 042
     Dates: start: 201311

REACTIONS (4)
  - Pruritus [Unknown]
  - Dyspnoea exertional [Unknown]
  - Cough [Unknown]
  - Hypoxia [Recovering/Resolving]
